FAERS Safety Report 8578201-0 (Version None)
Quarter: 2012Q3

REPORT INFORMATION
  Report Type: 
  Country: None (occurrence: None)
  Receive Date: 20120808
  Receipt Date: 20120801
  Transmission Date: 20120928
  Serious: Yes (Other)
  Sender: FDA-Public Use
  Company Number: US-PFIZER INC-2012187921

PATIENT
  Age: 48 Year
  Sex: Female
  Weight: 105.22 kg

DRUGS (8)
  1. NEURONTIN [Suspect]
     Dosage: 3600 MG, 2X/DAY
     Dates: start: 20080101
  2. DIAZEPAM [Concomitant]
     Dosage: UNK
  3. PROVENTIL-HFA [Concomitant]
     Dosage: UNK
  4. NEURONTIN [Suspect]
     Dosage: 3000 MG, 2X/DAY
  5. NEURONTIN [Suspect]
     Dosage: 600 MG, 3X/DAY
     Dates: start: 20110101
  6. NEURONTIN [Suspect]
     Indication: NEURALGIA
     Dosage: 600 MG, 3X/DAY
     Route: 048
     Dates: start: 20020101
  7. CELEBREX [Concomitant]
     Dosage: 200 MG, 2X/DAY
  8. OXYCODONE [Concomitant]
     Dosage: UNK

REACTIONS (2)
  - WEIGHT INCREASED [None]
  - OVERDOSE [None]
